FAERS Safety Report 8037186-6 (Version None)
Quarter: 2012Q1

REPORT INFORMATION
  Report Type: 
  Country: None (occurrence: None)
  Receive Date: 20120109
  Receipt Date: 20111228
  Transmission Date: 20120608
  Serious: Yes (Hospitalization, Other)
  Sender: FDA-Public Use
  Company Number: 1000024042

PATIENT
  Age: 58 Year
  Sex: Female
  Weight: 65.9 kg

DRUGS (6)
  1. LEXAPRO [Suspect]
     Indication: DEPRESSION
     Dosage: 20 MG (20 MG,1 IN 1 D), ORAL
     Route: 048
     Dates: start: 20071219
  2. CHANTIX [Concomitant]
  3. ABILIFY [Concomitant]
  4. ZYPREXA [Suspect]
  5. SAPHRIS (ASENAPINE MALEATE) [Concomitant]
  6. SEROQUEL [Suspect]
     Indication: BIPOLAR I DISORDER
     Dosage: 300 MG (300 MG,QHS) : 100 MG (100 MG, QAM)
     Dates: start: 20110812

REACTIONS (7)
  - PSYCHOTIC BEHAVIOUR [None]
  - OVERDOSE [None]
  - WEIGHT INCREASED [None]
  - PAIN [None]
  - BIPOLAR I DISORDER [None]
  - ASPARTATE AMINOTRANSFERASE INCREASED [None]
  - ALANINE AMINOTRANSFERASE INCREASED [None]
